FAERS Safety Report 8875916 (Version 1)
Quarter: 2012Q4

REPORT INFORMATION
  Report Type: 
  Country: US (occurrence: US)
  Receive Date: 20121023
  Receipt Date: 20121023
  Transmission Date: 20130627
  Serious: Yes (Other)
  Sender: FDA-Public Use
  Company Number: US-GLAXOSMITHKLINE-A0998024A

PATIENT
  Age: 68 Year
  Sex: Male

DRUGS (2)
  1. VOTRIENT [Suspect]
     Indication: RENAL CELL CARCINOMA
     Dosage: 800MG Per day
     Route: 048
     Dates: start: 201104
  2. ZINC SUPPLEMENT [Concomitant]

REACTIONS (10)
  - Malignant tumour excision [Not Recovered/Not Resolved]
  - Dysgeusia [Recovering/Resolving]
  - Food intolerance [Unknown]
  - Weight decreased [Recovering/Resolving]
  - Affective disorder [Unknown]
  - Diarrhoea [Unknown]
  - Skin discolouration [Unknown]
  - Increased tendency to bruise [Unknown]
  - Impaired healing [Unknown]
  - Hair colour changes [Unknown]
